FAERS Safety Report 10928082 (Version 2)
Quarter: 2015Q2

REPORT INFORMATION
  Report Type: Report from Study
  Country: US (occurrence: US)
  Receive Date: 20150319
  Receipt Date: 20150409
  Transmission Date: 20150821
  Serious: Yes (Death, Hospitalization)
  Sender: FDA-Public Use
  Company Number: US-BIOGENIDEC-2015BI029414

PATIENT
  Age: 51 Year
  Sex: Female
  Weight: 73 kg

DRUGS (23)
  1. OPIUM TINCTURE [Concomitant]
     Active Substance: OPIUM TINCTURE
     Indication: GASTROINTESTINAL STOMA OUTPUT INCREASED
     Route: 048
     Dates: start: 20141118
  2. ENTYVIO [Concomitant]
     Active Substance: VEDOLIZUMAB
     Indication: CROHN^S DISEASE
     Route: 042
     Dates: start: 20141020
  3. NYSTATIN. [Concomitant]
     Active Substance: NYSTATIN
     Dates: start: 20140117
  4. TRAZODONE [Concomitant]
     Active Substance: TRAZODONE HYDROCHLORIDE
     Route: 048
     Dates: start: 20140217
  5. TRIAMCINOLONE [Concomitant]
     Active Substance: TRIAMCINOLONE
     Dates: start: 20141112
  6. CLONIDINE. [Concomitant]
     Active Substance: CLONIDINE
     Dates: start: 20140909
  7. LORAZEPAM. [Concomitant]
     Active Substance: LORAZEPAM
     Route: 048
     Dates: start: 20130524
  8. METHOTREXATE [Concomitant]
     Active Substance: METHOTREXATE
     Indication: PYODERMA
     Dates: start: 20141231
  9. CHOLECALCIFEROL [Concomitant]
     Active Substance: CHOLECALCIFEROL
     Route: 048
     Dates: start: 20140205
  10. CHOLESTYRAMINE. [Concomitant]
     Active Substance: CHOLESTYRAMINE
     Route: 048
     Dates: start: 20131210
  11. CITALOPRAM [Concomitant]
     Active Substance: CITALOPRAM HYDROBROMIDE
     Route: 048
     Dates: start: 20060502
  12. CLOBETASOL [Concomitant]
     Active Substance: CLOBETASOL
     Route: 061
     Dates: start: 20150128
  13. CYCLOSPORINE. [Concomitant]
     Active Substance: CYCLOSPORINE
     Dates: start: 20141231
  14. DAPSONE. [Concomitant]
     Active Substance: DAPSONE
     Route: 061
     Dates: start: 20140922
  15. ZOLEDRONIC ACID [Concomitant]
     Active Substance: ZOLEDRONIC ACID
     Dates: start: 20130524
  16. CYCLOSPORINE. [Concomitant]
     Active Substance: CYCLOSPORINE
     Route: 061
     Dates: start: 20141112
  17. PREDNISONE. [Concomitant]
     Active Substance: PREDNISONE
     Indication: CROHN^S DISEASE
     Route: 048
     Dates: start: 20150130
  18. LOPERAMIDE [Concomitant]
     Active Substance: LOPERAMIDE
     Indication: GASTROINTESTINAL STOMA OUTPUT INCREASED
     Route: 048
     Dates: start: 20140214
  19. PREDNISONE. [Concomitant]
     Active Substance: PREDNISONE
     Indication: CROHN^S DISEASE
     Route: 048
     Dates: start: 20150105
  20. TACROLIMUS. [Concomitant]
     Active Substance: TACROLIMUS
     Route: 061
     Dates: start: 20141022
  21. TYSABRI [Suspect]
     Active Substance: NATALIZUMAB
     Indication: CROHN^S DISEASE
     Route: 042
     Dates: start: 20120224, end: 20130424
  22. ESOMEPRAZOLE [Concomitant]
     Active Substance: ESOMEPRAZOLE
     Indication: GASTROOESOPHAGEAL REFLUX DISEASE
     Route: 048
     Dates: start: 20140321
  23. LIDOCAINE. [Concomitant]
     Active Substance: LIDOCAINE
     Indication: PAIN
     Dates: start: 20141107

REACTIONS (1)
  - Histiocytosis haematophagic [Fatal]

NARRATIVE: CASE EVENT DATE: 20150208
